FAERS Safety Report 8894578 (Version 1)
Quarter: 2012Q4

REPORT INFORMATION
  Report Type: 
  Country: US (occurrence: US)
  Receive Date: 20121108
  Receipt Date: 20121108
  Transmission Date: 20130627
  Serious: Yes (Hospitalization, Other)
  Sender: FDA-Public Use
  Company Number: US-AMGEN-USASP2012070170

PATIENT
  Sex: Female

DRUGS (1)
  1. ENBREL [Suspect]
     Indication: RHEUMATOID ARTHRITIS
     Dosage: 50 mg, qwk

REACTIONS (6)
  - Caesarean section [Recovered/Resolved]
  - Myocardial infarction [Recovered/Resolved]
  - Gestational diabetes [Recovered/Resolved]
  - Multiple sclerosis [Not Recovered/Not Resolved]
  - Cardiac output decreased [Not Recovered/Not Resolved]
  - Barbiturates positive [Not Recovered/Not Resolved]
